FAERS Safety Report 8771718 (Version 1)
Quarter: 2012Q4

REPORT INFORMATION
  Report Type: 
  Country: CA (occurrence: CA)
  Receive Date: 20120906
  Receipt Date: 20120906
  Transmission Date: 20130627
  Serious: Yes (Hospitalization, Other)
  Sender: FDA-Public Use
  Company Number: CA-ELI_LILLY_AND_COMPANY-CA201112001172

PATIENT
  Age: 54 Year
  Sex: Female

DRUGS (15)
  1. FORTEO [Suspect]
     Indication: OSTEOPOROSIS
     Dosage: 20 ug, qd
     Route: 058
     Dates: start: 20110210
  2. OXYCONTIN [Concomitant]
  3. MIRTAZAPINE [Concomitant]
  4. TRAZODONE [Concomitant]
  5. AMITRIPTYLINE [Concomitant]
  6. GABAPENTIN [Concomitant]
  7. PANTOPRAZOLE [Concomitant]
  8. DICLOFENAC [Concomitant]
  9. SYNTHROID [Concomitant]
  10. VITAMINS NOS [Concomitant]
  11. NOVO-DOCUSATE [Concomitant]
  12. VITAMIN D [Concomitant]
  13. CALCIUM [Concomitant]
  14. DILAUDID [Concomitant]
  15. VOLTAREN                           /00372301/ [Concomitant]

REACTIONS (10)
  - Femur fracture [Unknown]
  - Device failure [Unknown]
  - Lower limb fracture [Unknown]
  - Tibia fracture [Not Recovered/Not Resolved]
  - Ankle fracture [Unknown]
  - Weight increased [Not Recovered/Not Resolved]
  - Pain in jaw [Not Recovered/Not Resolved]
  - Joint injury [Not Recovered/Not Resolved]
  - Arthralgia [Not Recovered/Not Resolved]
  - No therapeutic response [Unknown]
